FAERS Safety Report 16217752 (Version 1)
Quarter: 2019Q2

REPORT INFORMATION
  Report Type: Spontaneous
  Country: CA (occurrence: CA)
  Receive Date: 20190419
  Receipt Date: 20190419
  Transmission Date: 20190711
  Serious: Yes (Other)
  Sender: FDA-Public Use
  Company Number: CA-ICU MEDICAL, INC.-ICU2019CA00081

PATIENT
  Age: 32 Year
  Sex: Female

DRUGS (12)
  1. AMFETAMINE [Suspect]
     Active Substance: AMPHETAMINE
     Indication: PRODUCT USED FOR UNKNOWN INDICATION
     Route: 065
  2. HYDROMORPH CONTIN [Suspect]
     Active Substance: HYDROMORPHONE
     Indication: PRODUCT USED FOR UNKNOWN INDICATION
     Route: 042
  3. LYSERGIDE [Suspect]
     Active Substance: LYSERGIDE
     Indication: PRODUCT USED FOR UNKNOWN INDICATION
  4. MESCALINE [Suspect]
     Active Substance: MESCALINE
     Indication: PRODUCT USED FOR UNKNOWN INDICATION
     Route: 065
  5. MORPHINE SULFATE INJECTION [Suspect]
     Active Substance: MORPHINE SULFATE
     Indication: PRODUCT USED FOR UNKNOWN INDICATION
     Route: 065
  6. HYDROMORPH CONTIN [Suspect]
     Active Substance: HYDROMORPHONE
     Dosage: UNK
     Route: 045
  7. OXYCONTIN [Suspect]
     Active Substance: OXYCODONE HYDROCHLORIDE
     Indication: PRODUCT USED FOR UNKNOWN INDICATION
     Route: 042
  8. PSILOCYBINE [Suspect]
     Active Substance: PSILOCYBINE
     Indication: PRODUCT USED FOR UNKNOWN INDICATION
     Route: 065
  9. COCAINE [Suspect]
     Active Substance: COCAINE
     Indication: PRODUCT USED FOR UNKNOWN INDICATION
     Route: 065
  10. MARIJUANA [Suspect]
     Active Substance: CANNABIS SATIVA SUBSP. INDICA TOP
     Indication: PRODUCT USED FOR UNKNOWN INDICATION
  11. NICOTINE. [Suspect]
     Active Substance: NICOTINE
     Indication: PRODUCT USED FOR UNKNOWN INDICATION
  12. DILAUDID [Suspect]
     Active Substance: HYDROMORPHONE HYDROCHLORIDE
     Indication: PRODUCT USED FOR UNKNOWN INDICATION

REACTIONS (11)
  - Aggression [Unknown]
  - Fatigue [Unknown]
  - Hyperhidrosis [Unknown]
  - Substance abuse [Unknown]
  - Drug dependence [Unknown]
  - Exposure to contaminated device [Unknown]
  - Euphoric mood [Unknown]
  - Flushing [Unknown]
  - Antisocial behaviour [Unknown]
  - Emotional poverty [Unknown]
  - Nausea [Unknown]
